FAERS Safety Report 6151231-4 (Version None)
Quarter: 2009Q2

REPORT INFORMATION
  Report Type: 
  Country: None (occurrence: None)
  Receive Date: 20090410
  Receipt Date: 20090408
  Transmission Date: 20091009
  Serious: Yes (Life-Threatening, Hospitalization)
  Sender: FDA-Public Use
  Company Number: FR-BRISTOL-MYERS SQUIBB COMPANY-14580484

PATIENT
  Age: 74 Year
  Sex: Male

DRUGS (4)
  1. COUMADIN [Suspect]
     Indication: PHLEBITIS
     Route: 048
     Dates: start: 20090210
  2. PLAVIX [Suspect]
     Indication: AORTIC BYPASS
     Route: 048
  3. PLAVIX [Suspect]
     Indication: ARTERITIS
     Route: 048
  4. CALCIPARINE [Suspect]
     Indication: PHLEBITIS
     Route: 058
     Dates: start: 20090210, end: 20090101

REACTIONS (3)
  - ACUTE CORONARY SYNDROME [None]
  - ANAEMIA [None]
  - HAEMATOMA [None]
